FAERS Safety Report 13706356 (Version 1)
Quarter: 2017Q2

REPORT INFORMATION
  Report Type: Spontaneous
  Country: CA (occurrence: CA)
  Receive Date: 20170630
  Receipt Date: 20170630
  Transmission Date: 20170830
  Serious: Yes (Other)
  Sender: FDA-Public Use
  Company Number: CA-BEH-2017081650

PATIENT
  Age: 84 Year
  Sex: Male

DRUGS (2)
  1. ALBUREX [Suspect]
     Active Substance: ALBUMIN HUMAN
     Indication: FLUID REPLACEMENT
     Dosage: 448 ML, TOT
     Route: 065
     Dates: start: 20161123, end: 20161124
  2. TAZOCIN [Concomitant]
     Active Substance: PIPERACILLIN SODIUM\TAZOBACTAM SODIUM
     Dosage: UNK
     Route: 065
     Dates: start: 201611

REACTIONS (13)
  - Pulmonary sepsis [Unknown]
  - Delirium [Unknown]
  - Vasoplegia syndrome [None]
  - Infection [None]
  - Chills [Unknown]
  - Hypotension [Unknown]
  - Tachycardia [Unknown]
  - Drug ineffective [Unknown]
  - Infusion related reaction [None]
  - Pneumonia [Unknown]
  - Acute kidney injury [Unknown]
  - Febrile nonhaemolytic transfusion reaction [Recovered/Resolved]
  - Fluid retention [None]

NARRATIVE: CASE EVENT DATE: 20161124
